FAERS Safety Report 14100371 (Version 24)
Quarter: 2019Q3

REPORT INFORMATION
  Report Type: Report from Study
  Country: US (occurrence: US)
  Receive Date: 20171017
  Receipt Date: 20190916
  Transmission Date: 20191004
  Serious: Yes (Hospitalization, Other)
  Sender: FDA-Public Use
  Company Number: US-ACTELION-A-NJ2017-159078

PATIENT
  Age: 69 Year
  Sex: Female
  Weight: 53.52 kg

DRUGS (9)
  1. OXYGEN. [Concomitant]
     Active Substance: OXYGEN
     Dosage: 6-10 L
  2. OXYGEN. [Concomitant]
     Active Substance: OXYGEN
     Dosage: 3L
  3. OPSUMIT [Suspect]
     Active Substance: MACITENTAN
     Indication: PULMONARY ARTERIAL HYPERTENSION
     Dosage: 10 MG, QD
     Route: 048
     Dates: start: 20170123
  4. VELETRI [Suspect]
     Active Substance: EPOPROSTENOL
     Indication: PULMONARY ARTERIAL HYPERTENSION
     Dosage: 28 NG/KG PER MIN
     Route: 042
  5. VELETRI [Suspect]
     Active Substance: EPOPROSTENOL
     Dosage: 38 NG/KG, PER MIN
     Route: 042
  6. PREDNISONE. [Concomitant]
     Active Substance: PREDNISONE
  7. VELETRI [Suspect]
     Active Substance: EPOPROSTENOL
     Dosage: 26 NG/KG, PER MIN
     Route: 042
  8. VELETRI [Suspect]
     Active Substance: EPOPROSTENOL
     Dosage: 22 NG/KG, PER MIN
     Route: 042
  9. METFORMIN [Concomitant]
     Active Substance: METFORMIN HYDROCHLORIDE

REACTIONS (43)
  - Lung infiltration [Recovered/Resolved]
  - Weight increased [Recovered/Resolved with Sequelae]
  - Fluid overload [Recovered/Resolved]
  - Malaise [Recovered/Resolved with Sequelae]
  - Oxygen consumption increased [Recovered/Resolved]
  - Dyspnoea exertional [Unknown]
  - Loss of personal independence in daily activities [Unknown]
  - Catheter site rash [Not Recovered/Not Resolved]
  - Organising pneumonia [Recovered/Resolved with Sequelae]
  - Pain in extremity [Not Recovered/Not Resolved]
  - Chest discomfort [Unknown]
  - Diarrhoea [Not Recovered/Not Resolved]
  - Dizziness [Unknown]
  - Eye haemorrhage [Unknown]
  - Insomnia [Unknown]
  - Microalbuminuria [Unknown]
  - Pneumonia [Unknown]
  - Pulmonary oedema [Recovered/Resolved]
  - Hyperglycaemia [Unknown]
  - Oxygen saturation decreased [Recovered/Resolved with Sequelae]
  - Cough [Unknown]
  - Respiratory failure [Recovered/Resolved with Sequelae]
  - Oedema peripheral [Recovered/Resolved with Sequelae]
  - Autoimmune disorder [Unknown]
  - Pain in jaw [Not Recovered/Not Resolved]
  - Lung consolidation [Recovered/Resolved]
  - Pyrexia [Recovered/Resolved with Sequelae]
  - Fatigue [Unknown]
  - Dyspnoea [Recovered/Resolved with Sequelae]
  - Neuropathy peripheral [Not Recovered/Not Resolved]
  - Sleep disorder [Unknown]
  - Choking [Unknown]
  - Palpitations [Unknown]
  - Nasal congestion [Recovered/Resolved with Sequelae]
  - Hypoxia [Recovered/Resolved with Sequelae]
  - Eye pain [Unknown]
  - Rash [Not Recovered/Not Resolved]
  - Pneumonia viral [Unknown]
  - Catheter site irritation [Unknown]
  - Anaemia [Not Recovered/Not Resolved]
  - Paranasal sinus hypersecretion [Unknown]
  - Sinus congestion [Unknown]
  - Blood pressure diastolic increased [Unknown]

NARRATIVE: CASE EVENT DATE: 2017
